FAERS Safety Report 24885601 (Version 1)
Quarter: 2025Q1

REPORT INFORMATION
  Report Type: Report from Study
  Country: ES (occurrence: ES)
  Receive Date: 20250125
  Receipt Date: 20250125
  Transmission Date: 20250408
  Serious: Yes (Other)
  Sender: ABBVIE
  Company Number: ES-JNJFOC-20250159856

PATIENT

DRUGS (1)
  1. IBRUTINIB [Suspect]
     Active Substance: IBRUTINIB
     Indication: Chronic lymphocytic leukaemia
     Route: 048

REACTIONS (16)
  - Atrial fibrillation [Unknown]
  - Skin infection [Unknown]
  - Respiratory tract infection [Unknown]
  - Headache [Unknown]
  - Musculoskeletal disorder [Unknown]
  - Hypertension [Unknown]
  - Urinary tract infection [Unknown]
  - Anaemia [Unknown]
  - Lymphopenia [Unknown]
  - Cardiac disorder [Unknown]
  - Oedema [Unknown]
  - Neutropenia [Unknown]
  - Adverse event [Unknown]
  - Thrombocytopenia [Unknown]
  - Haemorrhage [Unknown]
  - Gastrointestinal disorder [Unknown]
